FAERS Safety Report 12080986 (Version 2)
Quarter: 2016Q1

REPORT INFORMATION
  Report Type: Report from Study
  Country: US (occurrence: US)
  Receive Date: 20160216
  Receipt Date: 20160314
  Transmission Date: 20160526
  Serious: No
  Sender: FDA-Public Use
  Company Number: PHEH2016US003467

PATIENT
  Age: 44 Year
  Sex: Female

DRUGS (2)
  1. TOBI [Suspect]
     Active Substance: TOBRAMYCIN
     Indication: CYSTIC FIBROSIS
     Dosage: 1 DF (300 MG/5 ML), BID
     Route: 055
     Dates: start: 20151223
  2. TOBI [Suspect]
     Active Substance: TOBRAMYCIN
     Indication: BRONCHIECTASIS

REACTIONS (3)
  - Product use issue [Unknown]
  - Wheezing [Unknown]
  - Laryngitis [Unknown]

NARRATIVE: CASE EVENT DATE: 201512
